FAERS Safety Report 6359909-4 (Version None)
Quarter: 2009Q3

REPORT INFORMATION
  Report Type: 
  Country: None (occurrence: None)
  Receive Date: 20090917
  Receipt Date: 20090210
  Transmission Date: 20100115
  Serious: No
  Sender: FDA-Public Use
  Company Number: US-BRISTOL-MYERS SQUIBB COMPANY-14500532

PATIENT
  Age: 88 Year
  Sex: Male

DRUGS (9)
  1. MEGACE [Suspect]
     Route: 065
  2. THALOMID [Suspect]
     Indication: PROSTATE CANCER
     Dosage: INCREASED BY 50 MG WEEKLY TO 200MG (QHS)
     Route: 048
     Dates: start: 20081027, end: 20081211
  3. SOTALOL HYDROCHLORIDE [Concomitant]
     Route: 065
  4. LORTAB [Concomitant]
     Route: 065
  5. CYTOXAN [Concomitant]
     Route: 065
     Dates: start: 20080701, end: 20081027
  6. DARBEPOETIN ALFA [Concomitant]
     Indication: ANAEMIA
     Route: 065
  7. DARBEPOETIN ALFA [Concomitant]
     Indication: CHEMOTHERAPY
     Route: 065
  8. DARBEPOETIN ALFA [Concomitant]
     Indication: RENAL FAILURE CHRONIC
     Route: 065
  9. WARFARIN [Concomitant]
     Indication: ATRIAL FIBRILLATION
     Route: 065
     Dates: end: 20080903

REACTIONS (1)
  - DYSPNOEA [None]
